FAERS Safety Report 16357083 (Version 2)
Quarter: 2019Q2

REPORT INFORMATION
  Report Type: Spontaneous
  Country: DE (occurrence: DE)
  Receive Date: 20190527
  Receipt Date: 20190611
  Transmission Date: 20190711
  Serious: Yes (Other)
  Sender: FDA-Public Use
  Company Number: DE-TEVA-2019-DE-1054815

PATIENT
  Age: 43 Year
  Sex: Female
  Weight: 86 kg

DRUGS (3)
  1. CIPRO [Suspect]
     Active Substance: CIPROFLOXACIN HYDROCHLORIDE
     Indication: URINARY TRACT DISORDER
     Dosage: 1-0-1
     Route: 048
     Dates: start: 20180620, end: 20180630
  2. CIPRO [Suspect]
     Active Substance: CIPROFLOXACIN HYDROCHLORIDE
     Dosage: 1-0-1, WHILE KH STAY INTRAVENOUSLY
     Dates: start: 20180820, end: 20180911
  3. CIPRO [Suspect]
     Active Substance: CIPROFLOXACIN HYDROCHLORIDE
     Dosage: 1-0-1, AFTER WHICH 52, 0-0-1/2
     Route: 048
     Dates: start: 20180320, end: 20180402

REACTIONS (4)
  - Dizziness [Not Recovered/Not Resolved]
  - IVth nerve paralysis [Not Recovered/Not Resolved]
  - Diplopia [Recovering/Resolving]
  - Disturbance in attention [Not Recovered/Not Resolved]

NARRATIVE: CASE EVENT DATE: 20190403
